FAERS Safety Report 6445032-7 (Version None)
Quarter: 2009Q4

REPORT INFORMATION
  Report Type: 
  Country: None (occurrence: None)
  Receive Date: 20091118
  Receipt Date: 20091112
  Transmission Date: 20100525
  Serious: Yes (Other)
  Sender: FDA-Public Use
  Company Number: GB-TEVA-215257ISR

PATIENT
  Age: 55 Year
  Sex: Female

DRUGS (3)
  1. VALPROIC ACID [Suspect]
     Indication: SCHIZOPHRENIA
     Route: 048
     Dates: start: 20090810
  2. QUETIAPINE [Suspect]
     Indication: SCHIZOPHRENIA
     Route: 048
     Dates: start: 20091013
  3. CLOZAPINE [Suspect]
     Route: 048
     Dates: start: 20090911, end: 20090923

REACTIONS (8)
  - ELECTROCARDIOGRAM ABNORMAL [None]
  - LOWER RESPIRATORY TRACT INFECTION [None]
  - MYOCARDITIS [None]
  - NEUTROPENIA [None]
  - NEUTROPHIL COUNT DECREASED [None]
  - PYREXIA [None]
  - TACHYCARDIA [None]
  - WHITE BLOOD CELL COUNT DECREASED [None]
